FAERS Safety Report 8297180-7 (Version None)
Quarter: 2012Q2

REPORT INFORMATION
  Report Type: 
  Country: None (occurrence: None)
  Receive Date: 20120419
  Receipt Date: 20120416
  Transmission Date: 20120825
  Serious: Yes (Death, Other)
  Sender: FDA-Public Use
  Company Number: US-PFIZER INC-2012055313

PATIENT
  Sex: Male

DRUGS (1)
  1. SUTENT [Suspect]
     Indication: NEUROENDOCRINE TUMOUR
     Dosage: 25 MG, 1X/DAY
     Dates: start: 20120103, end: 20120217

REACTIONS (2)
  - DISEASE PROGRESSION [None]
  - NEUROENDOCRINE TUMOUR [None]
